FAERS Safety Report 18747592 (Version 1)
Quarter: 2021Q1

REPORT INFORMATION
  Report Type: Other
  Country: ES (occurrence: ES)
  Receive Date: 20210115
  Receipt Date: 20210115
  Transmission Date: 20210419
  Serious: Yes (Death, Hospitalization, Other)
  Sender: FDA-Public Use
  Company Number: ES-NEOPHARMA INC-000423

PATIENT
  Age: 60 Year
  Sex: Male

DRUGS (21)
  1. AMOXICILLIN/CLAVULANATE POTASSIUM [Suspect]
     Active Substance: AMOXICILLIN\CLAVULANATE POTASSIUM
     Indication: ANTIBIOTIC PROPHYLAXIS
     Route: 042
  2. FENTANEST [Suspect]
     Active Substance: FENTANYL CITRATE
     Indication: GENERAL ANAESTHESIA
     Dosage: PROPOFOL, FENTANEST AND ROCURONIUM TOGETHER WITH OROTRACHEAL INTUBATION.
  3. EPHEDRINE. [Suspect]
     Active Substance: EPHEDRINE
     Indication: PRODUCT USED FOR UNKNOWN INDICATION
  4. FENTANYL. [Suspect]
     Active Substance: FENTANYL
     Indication: MAINTENANCE OF ANAESTHESIA
     Dosage: FOR INDUCTION AND MAINTENANCE OF ANESTHESIA
  5. AMOXICILLIN/CLAVULANATE POTASSIUM [Suspect]
     Active Substance: AMOXICILLIN\CLAVULANATE POTASSIUM
     Indication: PRODUCT USED FOR UNKNOWN INDICATION
     Route: 042
  6. REMIFENTANIL [Suspect]
     Active Substance: REMIFENTANIL
     Indication: MAINTENANCE OF ANAESTHESIA
     Dosage: ANESTHESIA WAS PERFORMED WITH SEVOFLURANE AND REMIFENTANIL
     Route: 042
  7. AMIODARONE [Suspect]
     Active Substance: AMIODARONE
     Indication: PRODUCT USED FOR UNKNOWN INDICATION
     Dosage: EPINEPHRINE WAS ADMINISTERED EVERY 4 MIN ALONG WITH A SINGLE DOSE OF AMIODARONE
  8. CISATRACURIUM. [Suspect]
     Active Substance: CISATRACURIUM
     Indication: MAINTENANCE OF ANAESTHESIA
     Dosage: FOR INDUCTION AND MAINTENANCE OF ANESTHESIA
  9. DEXKETOPROFEN [Suspect]
     Active Substance: DEXKETOPROFEN
     Indication: NEOPLASM
  10. PARACETAMOL [Suspect]
     Active Substance: ACETAMINOPHEN
     Indication: NEOPLASM
  11. PROPOFOL. [Suspect]
     Active Substance: PROPOFOL
     Indication: SEDATION
  12. EPINEPHRINE. [Suspect]
     Active Substance: EPINEPHRINE
     Indication: PRODUCT USED FOR UNKNOWN INDICATION
     Dosage: EVERY 4 MIN ALONG WITH A SINGLE DOSE OF?AMIODARONE
  13. ROCURONIUM [Suspect]
     Active Substance: ROCURONIUM BROMIDE
     Indication: GENERAL ANAESTHESIA
     Dosage: PROPOFOL, FENTANEST AND ROCURONIUM TOGETHER WITH OROTRACHEAL INTUBATION.
  14. ATROPINE. [Suspect]
     Active Substance: ATROPINE
     Indication: PRODUCT USED FOR UNKNOWN INDICATION
  15. AMOXICILLIN/CLAVULANATE POTASSIUM [Suspect]
     Active Substance: AMOXICILLIN\CLAVULANATE POTASSIUM
     Indication: NEOPLASM
  16. PROPOFOL. [Suspect]
     Active Substance: PROPOFOL
     Indication: GENERAL ANAESTHESIA
     Dosage: PROPOFOL, FENTANEST AND ROCURONIUM TOGETHER WITH OROTRACHEAL INTUBATION.
  17. SEVOFLURANE. [Suspect]
     Active Substance: SEVOFLURANE
     Indication: MAINTENANCE OF ANAESTHESIA
     Dosage: FOR INDUCTION AND MAINTENANCE OF ANESTHESIA
     Route: 042
  18. NOREPINEPHRINE. [Suspect]
     Active Substance: NOREPINEPHRINE
     Indication: PRODUCT USED FOR UNKNOWN INDICATION
     Route: 042
  19. SIMVASTATIN. [Concomitant]
     Active Substance: SIMVASTATIN
     Indication: DYSLIPIDAEMIA
  20. HYDROCORTISONE. [Suspect]
     Active Substance: HYDROCORTISONE
     Indication: PRODUCT USED FOR UNKNOWN INDICATION
  21. SEVOFLURANE. [Suspect]
     Active Substance: SEVOFLURANE
     Indication: MAINTENANCE OF ANAESTHESIA

REACTIONS (2)
  - Kounis syndrome [Fatal]
  - Hypoxic-ischaemic encephalopathy [Fatal]
